FAERS Safety Report 4400959-2 (Version None)
Quarter: 2004Q3

REPORT INFORMATION
  Report Type: 
  Country: None (occurrence: None)
  Receive Date: 20040907
  Receipt Date: 20030826
  Transmission Date: 20050211
  Serious: No
  Sender: FDA-Public Use
  Company Number: US-BRISTOL-MYERS SQUIBB COMPANY-12366431

PATIENT
  Age: 86 Year
  Sex: Female

DRUGS (1)
  1. COUMADIN [Suspect]
     Indication: CARDIAC ASSISTANCE DEVICE USER
     Route: 048

REACTIONS (2)
  - BLOOD VISCOSITY INCREASED [None]
  - PROTHROMBIN LEVEL DECREASED [None]
